FAERS Safety Report 7793346-0 (Version None)
Quarter: 2011Q4

REPORT INFORMATION
  Report Type: 
  Country: None (occurrence: None)
  Receive Date: 20111003
  Receipt Date: 20110615
  Transmission Date: 20120403
  Serious: Yes (Other)
  Sender: FDA-Public Use
  Company Number: IT-BAYER-2011-051160

PATIENT
  Sex: Male

DRUGS (1)
  1. AVELOX [Suspect]
     Dosage: UNK
     Dates: start: 20110604, end: 20110612

REACTIONS (3)
  - MYALGIA [None]
  - SKIN DISCOMFORT [None]
  - OROPHARYNGEAL BLISTERING [None]
